FAERS Safety Report 7663338-0 (Version None)
Quarter: 2011Q3

REPORT INFORMATION
  Report Type: 
  Country: None (occurrence: None)
  Receive Date: 20110805
  Receipt Date: 20100812
  Transmission Date: 20111222
  Serious: No
  Sender: FDA-Public Use
  Company Number: US-ABBOTT-10P-163-0664058-00

PATIENT
  Sex: Male
  Weight: 69.916 kg

DRUGS (8)
  1. NIASPAN [Suspect]
     Indication: HIGH DENSITY LIPOPROTEIN DECREASED
     Dates: start: 20100721, end: 20100813
  2. CADUET [Concomitant]
     Indication: BLOOD CHOLESTEROL INCREASED
     Dates: start: 20100720
  3. RAMIPRIL [Concomitant]
     Indication: HYPERTENSION
  4. NIASPAN [Suspect]
     Indication: HIGH DENSITY LIPOPROTEIN DECREASED
     Dates: start: 20091001, end: 20100720
  5. CADUET [Concomitant]
     Indication: HYPERTENSION
  6. NIASPAN [Suspect]
     Indication: LOW DENSITY LIPOPROTEIN INCREASED
  7. PLAVIX [Concomitant]
     Indication: ANGIOPLASTY
  8. NIASPAN [Suspect]
     Indication: LOW DENSITY LIPOPROTEIN INCREASED

REACTIONS (3)
  - MUSCULOSKELETAL STIFFNESS [None]
  - BONE MARROW OEDEMA [None]
  - MOBILITY DECREASED [None]
